FAERS Safety Report 8998470 (Version 2)
Quarter: 2013Q4

REPORT INFORMATION
  Report Type: Spontaneous
  Country: ES (occurrence: ES)
  Receive Date: 20130103
  Receipt Date: 20131206
  Transmission Date: 20140711
  Serious: Yes (Hospitalization)
  Sender: FDA-Public Use
  Company Number: ES-ROCHE-1175101

PATIENT
  Age: 44 Year
  Sex: Female

DRUGS (3)
  1. PEGASYS [Suspect]
     Indication: HEPATITIS C
     Route: 058
     Dates: start: 20120601, end: 20120914
  2. RIBAVIRIN [Interacting]
     Indication: HEPATITIS C
     Route: 048
     Dates: start: 20120601, end: 20120914
  3. INCIVO [Interacting]
     Indication: HEPATITIS C
     Route: 048
     Dates: start: 20120601, end: 20120824

REACTIONS (5)
  - Rash [Recovered/Resolved]
  - Rash generalised [Recovered/Resolved]
  - Oedema peripheral [Recovered/Resolved]
  - Face oedema [Recovered/Resolved]
  - Hypereosinophilic syndrome [Recovered/Resolved]
